FAERS Safety Report 9601853 (Version 1)
Quarter: 2013Q4

REPORT INFORMATION
  Report Type: Spontaneous
  Country: US (occurrence: US)
  Receive Date: 20131007
  Receipt Date: 20131007
  Transmission Date: 20140711
  Serious: No
  Sender: FDA-Public Use
  Company Number: US-009507513-1310USA000060

PATIENT
  Sex: Female
  Weight: 139.23 kg

DRUGS (1)
  1. NEXPLANON [Suspect]
     Indication: CONTRACEPTION
     Dosage: 68 MG/ 1 ROD EVERY THREE YEARS
     Route: 059
     Dates: start: 20130322, end: 20130923

REACTIONS (2)
  - Unintended pregnancy [Unknown]
  - Back pain [Unknown]
